FAERS Safety Report 5638649-0 (Version None)
Quarter: 2008Q1

REPORT INFORMATION
  Report Type: 
  Country: None (occurrence: None)
  Receive Date: 20080226
  Receipt Date: 20070904
  Transmission Date: 20080703
  Serious: No
  Sender: FDA-Public Use
  Company Number: A0668970A

PATIENT
  Age: 40 Year
  Sex: Male
  Weight: 118.6 kg

DRUGS (12)
  1. IMITREX [Suspect]
     Indication: HEADACHE
     Route: 058
     Dates: start: 20070806
  2. VERAPAMIL [Concomitant]
     Dosage: 1CAP PER DAY
     Route: 048
     Dates: start: 20070410
  3. ANDROGEL [Concomitant]
     Dosage: 25MG PER DAY
     Route: 062
  4. CELEXA [Concomitant]
     Route: 048
  5. FLEXERIL [Concomitant]
     Dosage: 10MG TWICE PER DAY
     Route: 048
  6. FENTANYL CITRATE [Concomitant]
     Route: 002
  7. LIPITOR [Concomitant]
     Route: 048
  8. PROMETHAZINE [Concomitant]
     Dosage: 25MG THREE TIMES PER DAY
     Route: 048
  9. NAPROXEN [Concomitant]
  10. FENTANYL TRANSDERMAL SYSTEM [Concomitant]
     Route: 062
     Dates: start: 20070401
  11. ZOMIG [Concomitant]
  12. ZANAFLEX [Concomitant]

REACTIONS (3)
  - HEADACHE [None]
  - MUSCULOSKELETAL STIFFNESS [None]
  - VOMITING [None]
